FAERS Safety Report 6151269-7 (Version None)
Quarter: 2009Q2

REPORT INFORMATION
  Report Type: 
  Country: None (occurrence: None)
  Receive Date: 20090410
  Receipt Date: 20080416
  Transmission Date: 20091009
  Serious: Yes (Hospitalization, Other)
  Sender: FDA-Public Use
  Company Number: US-ASTRAZENECA-2007UW27341

PATIENT
  Age: 17717 Day
  Sex: Female
  Weight: 121.6 kg

DRUGS (26)
  1. SEROQUEL [Suspect]
     Indication: DEPRESSION
     Dosage: 25 MG- 300 MG
     Route: 048
     Dates: start: 20000101
  2. POTASSIUM CL [Concomitant]
  3. FUROSEMIDE [Concomitant]
  4. LISINOPRIL [Concomitant]
  5. CARTIA XT [Concomitant]
  6. GLYBURIDE [Concomitant]
  7. VERAPAMIL [Concomitant]
  8. SIMVASTATIN [Concomitant]
  9. RANITIDINE [Concomitant]
  10. BUSPIRONE HCL [Concomitant]
  11. CYCLOBENZAPRINE [Concomitant]
  12. ALBUTEROL [Concomitant]
  13. ATROPINE [Concomitant]
  14. NAPROXEN [Concomitant]
  15. BENAZEPRIL HYDROCHLORIDE [Concomitant]
  16. LEVAQUIN [Concomitant]
  17. ADVAIR DISKUS 100/50 [Concomitant]
  18. PROTONIX [Concomitant]
  19. ATROVENT [Concomitant]
  20. AZMACORT [Concomitant]
  21. BIDEX [Concomitant]
  22. METHYLPREDNISOLONE 4MG TAB [Concomitant]
  23. LIPITOR [Concomitant]
  24. NOVOLOG [Concomitant]
  25. LEXAPRO [Concomitant]
  26. DIPHENHYDRAMINE HCL [Concomitant]

REACTIONS (19)
  - ASTHMA [None]
  - BLOOD CHOLESTEROL INCREASED [None]
  - BRONCHITIS [None]
  - CARDIAC FAILURE CONGESTIVE [None]
  - CHEST PAIN [None]
  - CHRONIC OBSTRUCTIVE PULMONARY DISEASE [None]
  - CONJUNCTIVITIS [None]
  - DIABETES MELLITUS [None]
  - DRUG ABUSE [None]
  - HEADACHE [None]
  - HYPERLIPIDAEMIA [None]
  - OBESITY [None]
  - PICKWICKIAN SYNDROME [None]
  - RESPIRATORY DISTRESS [None]
  - SLEEP APNOEA SYNDROME [None]
  - SUICIDAL IDEATION [None]
  - SUPRAVENTRICULAR TACHYCARDIA [None]
  - TYPE 2 DIABETES MELLITUS [None]
  - UPPER RESPIRATORY TRACT INFECTION [None]
